FAERS Safety Report 16188318 (Version 3)
Quarter: 2019Q3

REPORT INFORMATION
  Report Type: Spontaneous
  Country: BE (occurrence: BE)
  Receive Date: 20190412
  Receipt Date: 20190816
  Transmission Date: 20191004
  Serious: Yes (Other)
  Sender: FDA-Public Use
  Company Number: BE-ROCHE-2301265

PATIENT
  Age: 48 Year

DRUGS (12)
  1. LORLATINIB [Concomitant]
     Active Substance: LORLATINIB
  2. PEMETREXED. [Concomitant]
     Active Substance: PEMETREXED
  3. TECENTRIQ [Suspect]
     Active Substance: ATEZOLIZUMAB
     Indication: NON-SMALL CELL LUNG CANCER
     Route: 042
     Dates: start: 20190327
  4. TECENTRIQ [Suspect]
     Active Substance: ATEZOLIZUMAB
     Route: 042
     Dates: start: 20190805
  5. AVASTIN [Suspect]
     Active Substance: BEVACIZUMAB
     Indication: NON-SMALL CELL LUNG CANCER
     Route: 042
     Dates: start: 20190327
  6. AVASTIN [Suspect]
     Active Substance: BEVACIZUMAB
     Route: 042
     Dates: start: 20190805
  7. NINTEDANIB [Concomitant]
     Active Substance: NINTEDANIB
  8. AVASTIN [Suspect]
     Active Substance: BEVACIZUMAB
     Route: 042
     Dates: start: 20190619
  9. DOCETAXEL. [Concomitant]
     Active Substance: DOCETAXEL
  10. CRIZOTINIB [Concomitant]
     Active Substance: CRIZOTINIB
  11. CARBOPLATIN. [Concomitant]
     Active Substance: CARBOPLATIN
  12. TECENTRIQ [Suspect]
     Active Substance: ATEZOLIZUMAB
     Route: 042
     Dates: start: 20190619

REACTIONS (3)
  - Deep vein thrombosis [Unknown]
  - Product use in unapproved indication [Unknown]
  - Off label use [Unknown]

NARRATIVE: CASE EVENT DATE: 20190327
